FAERS Safety Report 10457544 (Version 1)
Quarter: 2014Q3

REPORT INFORMATION
  Report Type: Spontaneous
  Country: FR (occurrence: FR)
  Receive Date: 20140916
  Receipt Date: 20140916
  Transmission Date: 20150326
  Serious: Yes (Hospitalization)
  Sender: FDA-Public Use
  Company Number: PHHY2014FR118067

PATIENT
  Age: 91 Year
  Sex: Male

DRUGS (9)
  1. SOTALOL. [Suspect]
     Active Substance: SOTALOL
     Dosage: UNK UKN, UNK
  2. CHOLECALCIFEROL [Concomitant]
     Active Substance: CHOLECALCIFEROL
     Dosage: 1 DF, DAILY
  3. CALCIUM [Concomitant]
     Active Substance: CALCIUM
     Dosage: 1 DF, DAILY
  4. ALAP [Concomitant]
     Dosage: 0.25 MG, QD
  5. EXELON [Suspect]
     Active Substance: RIVASTIGMINE TARTRATE
     Indication: DEMENTIA ALZHEIMER^S TYPE
     Dosage: 4.6 MG, QD
  6. PREVISCAN [Concomitant]
     Active Substance: FLUINDIONE
     Dosage: 1 DF, DAILY
  7. NITRIDERM TTS [Suspect]
     Active Substance: NITROGLYCERIN
     Dosage: 5 MG, BID
     Route: 062
  8. ACTONEL [Concomitant]
     Active Substance: RISEDRONATE SODIUM
     Dosage: 30 MG, QD
  9. EFFEXOR [Suspect]
     Active Substance: VENLAFAXINE HYDROCHLORIDE
     Dosage: 75 MG, TID
     Route: 048

REACTIONS (2)
  - Orthostatic hypotension [Recovered/Resolved]
  - Fall [Recovered/Resolved]

NARRATIVE: CASE EVENT DATE: 2013
